FAERS Safety Report 12644221 (Version 1)
Quarter: 2016Q3

REPORT INFORMATION
  Report Type: Spontaneous
  Country: US (occurrence: US)
  Receive Date: 20160811
  Receipt Date: 20160811
  Transmission Date: 20161109
  Serious: No
  Sender: FDA-Public Use
  Company Number: US-ENDO PHARMACEUTICALS INC.-2016-001875

PATIENT
  Age: 77 Year
  Sex: Male
  Weight: 108.96 kg

DRUGS (2)
  1. FUROSEMIDE TABLETS [Suspect]
     Active Substance: FUROSEMIDE
     Indication: FLUID RETENTION
     Route: 065
     Dates: start: 201510, end: 201601
  2. FUROSEMIDE TABLETS [Suspect]
     Active Substance: FUROSEMIDE
     Route: 065
     Dates: start: 201601

REACTIONS (1)
  - Weight increased [Unknown]

NARRATIVE: CASE EVENT DATE: 20160129
